FAERS Safety Report 8127160-3 (Version None)
Quarter: 2012Q1

REPORT INFORMATION
  Report Type: 
  Country: None (occurrence: None)
  Receive Date: 20120210
  Receipt Date: 20120207
  Transmission Date: 20120608
  Serious: Yes (Hospitalization)
  Sender: FDA-Public Use
  Company Number: JP-PFIZER INC-2012033644

PATIENT
  Age: 36 Year
  Sex: Female

DRUGS (3)
  1. ZOLOFT [Suspect]
     Dosage: 25 MG/DAY
     Route: 048
     Dates: start: 20120203, end: 20120204
  2. RISPERDAL [Suspect]
     Dosage: UNK
     Route: 048
     Dates: start: 20120203, end: 20120204
  3. ALPRAZOLAM [Suspect]
     Dosage: 0.4 MG/DAY (FOR ROUTINE USE AND AS-NEEDED USE)
     Route: 048
     Dates: start: 20120203, end: 20120204

REACTIONS (2)
  - DEHYDRATION [None]
  - ANXIETY DISORDER [None]
